FAERS Safety Report 4759507-X (Version None)
Quarter: 2005Q3

REPORT INFORMATION
  Report Type: 
  Country: None (occurrence: None)
  Receive Date: 20050831
  Receipt Date: 20050823
  Transmission Date: 20060218
  Serious: Yes (Other)
  Sender: FDA-Public Use
  Company Number: 2005119103

PATIENT
  Age: 46 Year
  Sex: Male
  Weight: 90.7194 kg

DRUGS (11)
  1. DILANTIN [Suspect]
     Indication: EPILEPSY
     Dosage: 400 MG (200 MG, 2 IN 1 D), ORAL
     Route: 048
  2. RISPERDAL [Suspect]
     Indication: SCHIZOPHRENIA
     Dosage: 50 MG (50 MG, 1 IN 2WK), INTRAMUSCULAR
     Route: 030
     Dates: start: 20050301
  3. RISPERDAL [Suspect]
     Indication: SCHIZOPHRENIA
     Dosage: 6 MG (6 MG, 1 IN 1D),ORAL
     Route: 048
     Dates: start: 20040412
  4. SYNTHROID [Concomitant]
  5. PRILOSEC [Concomitant]
  6. ATIVAN [Concomitant]
  7. REGLAN [Concomitant]
  8. COLACE (DOCUSATE SODIUM) [Concomitant]
  9. LORATADINE [Concomitant]
  10. RANITIDINE HCL [Concomitant]
  11. IBUPROFEN [Concomitant]

REACTIONS (2)
  - ANTICONVULSANT DRUG LEVEL DECREASED [None]
  - GRAND MAL CONVULSION [None]
